FAERS Safety Report 20254455 (Version 1)
Quarter: 2021Q4

REPORT INFORMATION
  Report Type: Spontaneous
  Country: US (occurrence: US)
  Receive Date: 20211230
  Receipt Date: 20211230
  Transmission Date: 20220303
  Serious: No
  Sender: FDA-Public Use
  Company Number: US-009507513-2112USA000518

PATIENT
  Sex: Female

DRUGS (3)
  1. JANUVIA [Suspect]
     Active Substance: SITAGLIPTIN PHOSPHATE
     Indication: Diabetes mellitus
     Dosage: 1 TABLET/ DAY
     Route: 048
     Dates: start: 202106
  2. METFORMIN [Concomitant]
     Active Substance: METFORMIN HYDROCHLORIDE
     Dosage: 1000MG/ 2X A DAY
  3. INSULIN NOS [Concomitant]
     Active Substance: INSULIN NOS
     Dosage: 20UNITS/1XDAY

REACTIONS (2)
  - Maternal exposure during pregnancy [Not Recovered/Not Resolved]
  - No adverse event [Unknown]
